FAERS Safety Report 12355114 (Version 1)
Quarter: 2016Q2

REPORT INFORMATION
  Report Type: Spontaneous
  Country: US (occurrence: US)
  Receive Date: 20160511
  Receipt Date: 20160511
  Transmission Date: 20160815
  Serious: No
  Sender: FDA-Public Use
  Company Number: US-ENDO PHARMACEUTICALS INC.-2015-001993

PATIENT
  Age: 44 Year
  Sex: Female
  Weight: 50.85 kg

DRUGS (2)
  1. GILDESS FE TABLETS [Suspect]
     Active Substance: ETHINYL ESTRADIOL\NORETHINDRONE ACETATE
     Indication: DEPRESSED MOOD
     Route: 048
     Dates: start: 201506, end: 201506
  2. GILDESS FE TABLETS [Suspect]
     Active Substance: ETHINYL ESTRADIOL\NORETHINDRONE ACETATE
     Route: 048
     Dates: start: 20150705

REACTIONS (4)
  - Inappropriate schedule of drug administration [Not Recovered/Not Resolved]
  - Irritability [Not Recovered/Not Resolved]
  - Off label use [Not Recovered/Not Resolved]
  - Metrorrhagia [Not Recovered/Not Resolved]

NARRATIVE: CASE EVENT DATE: 201506
